FAERS Safety Report 7586838-0 (Version None)
Quarter: 2011Q3

REPORT INFORMATION
  Report Type: 
  Country: None (occurrence: None)
  Receive Date: 20110701
  Receipt Date: 20110622
  Transmission Date: 20111222
  Serious: Yes (Hospitalization)
  Sender: FDA-Public Use
  Company Number: PHHY2011IT48320

PATIENT
  Sex: Female

DRUGS (8)
  1. DEXAMETHASONE SODIUM PHOSPHATE [Concomitant]
     Indication: ANAPHYLAXIS PROPHYLAXIS
     Dosage: 2 DF, UNK
     Route: 042
     Dates: start: 20110517, end: 20110517
  2. PACLITAXEL [Suspect]
     Dosage: UNK
     Dates: start: 20110607
  3. NOVABAN [Concomitant]
     Indication: PROPHYLAXIS OF NAUSEA AND VOMITING
     Route: 042
     Dates: start: 20110517, end: 20110517
  4. PACLITAXEL [Suspect]
     Indication: ENDOMETRIAL CANCER STAGE IV
     Route: 042
     Dates: start: 20110517, end: 20110517
  5. METHYLPREDNISOLONE [Concomitant]
  6. RANIDIL [Concomitant]
     Indication: PROPHYLAXIS
     Dosage: 100 MG, UNK
     Route: 042
     Dates: start: 20110517, end: 20110517
  7. TRIMETON [Concomitant]
  8. CARBOPLATIN [Concomitant]
     Indication: ENDOMETRIAL CANCER STAGE IV
     Dosage: 405 MG, UNK
     Route: 042
     Dates: start: 20110517, end: 20110517

REACTIONS (4)
  - DYSPNOEA [None]
  - CYANOSIS [None]
  - THROAT TIGHTNESS [None]
  - LOSS OF CONSCIOUSNESS [None]
